FAERS Safety Report 13805391 (Version 1)
Quarter: 2017Q3

REPORT INFORMATION
  Report Type: Spontaneous
  Country: GB (occurrence: GB)
  Receive Date: 20170728
  Receipt Date: 20170728
  Transmission Date: 20171127
  Serious: Yes (Life-Threatening, Other)
  Sender: FDA-Public Use
  Company Number: GB-SUN PHARMACEUTICAL INDUSTRIES LTD-2017R1-146507

PATIENT
  Age: 30 Year
  Sex: Male

DRUGS (4)
  1. BISOPROLOL [Suspect]
     Active Substance: BISOPROLOL
     Indication: VENTRICULAR EXTRASYSTOLES
     Route: 065
  2. FLECAINIDE [Suspect]
     Active Substance: FLECAINIDE
     Indication: VENTRICULAR FIBRILLATION
     Route: 065
  3. BISOPROLOL [Suspect]
     Active Substance: BISOPROLOL
     Indication: VENTRICULAR FIBRILLATION
  4. FLECAINIDE [Suspect]
     Active Substance: FLECAINIDE
     Indication: VENTRICULAR EXTRASYSTOLES

REACTIONS (1)
  - Drug ineffective [Unknown]
